FAERS Safety Report 6495188-5 (Version None)
Quarter: 2009Q4

REPORT INFORMATION
  Report Type: 
  Country: None (occurrence: None)
  Receive Date: 20091214
  Receipt Date: 20090508
  Transmission Date: 20100525
  Serious: No
  Sender: FDA-Public Use
  Company Number: US-BRISTOL-MYERS SQUIBB COMPANY-14619571

PATIENT

DRUGS (4)
  1. ABILIFY [Suspect]
     Indication: MAJOR DEPRESSION
     Dosage: INITIATED 6WEEKS AGO. DEDUCED TO 1MG.
  2. LEXAPRO [Concomitant]
  3. CLONAZEPAM [Concomitant]
  4. XANAX [Concomitant]

REACTIONS (3)
  - AKATHISIA [None]
  - DRUG INEFFECTIVE [None]
  - INSOMNIA [None]
